FAERS Safety Report 13968087 (Version 1)
Quarter: 2017Q3

REPORT INFORMATION
  Report Type: Spontaneous
  Country: US (occurrence: US)
  Receive Date: 20170914
  Receipt Date: 20170914
  Transmission Date: 20171128
  Serious: No
  Sender: FDA-Public Use
  Company Number: US-KOWA-16US001892

PATIENT

DRUGS (4)
  1. LIVALO [Suspect]
     Active Substance: PITAVASTATIN CALCIUM
     Indication: BLOOD CHOLESTEROL INCREASED
     Dosage: 1 MG, UNK
     Dates: start: 2014, end: 2015
  2. LIVALO [Suspect]
     Active Substance: PITAVASTATIN CALCIUM
     Dosage: 1 MG, UNK
     Dates: start: 2015, end: 201509
  3. ALFUZOSIN [Concomitant]
     Active Substance: ALFUZOSIN
     Indication: PROSTATOMEGALY
     Dosage: 10 MG, QD
  4. LIVALO [Suspect]
     Active Substance: PITAVASTATIN CALCIUM
     Dosage: 1 MG, QD
     Dates: start: 201609

REACTIONS (2)
  - Intentional product misuse [Unknown]
  - Pruritus [Recovered/Resolved]

NARRATIVE: CASE EVENT DATE: 2014
